FAERS Safety Report 5325598-0 (Version None)
Quarter: 2007Q2

REPORT INFORMATION
  Report Type: 
  Country: None (occurrence: None)
  Receive Date: 20070515
  Receipt Date: 20070503
  Transmission Date: 20071010
  Serious: Yes (Hospitalization)
  Sender: FDA-Public Use
  Company Number: US-ELI_LILLY_AND_COMPANY-US200705000870

PATIENT
  Age: 75 Year
  Sex: Male

DRUGS (11)
  1. CYMBALTA [Suspect]
     Indication: DEPRESSION
     Dosage: 30 MG, DAILY (1/D)
     Route: 048
     Dates: start: 20070403, end: 20070416
  2. CYMBALTA [Suspect]
     Dosage: 60 MG, DAILY (1/D)
     Route: 048
     Dates: start: 20070401
  3. MESTINON [Concomitant]
     Indication: MYASTHENIA GRAVIS
     Dosage: 60 MG, UNK
  4. MESTINON [Concomitant]
     Dosage: 180 MG, EACH EVENING
  5. CELLCEPT [Concomitant]
     Dosage: 2000 MG, UNK
  6. POTASSIUM ACETATE [Concomitant]
  7. DIGOXIN [Concomitant]
     Indication: ATRIAL FIBRILLATION
     Dosage: 0.25 MG, UNK
  8. CORDARONE [Concomitant]
     Indication: ATRIAL FIBRILLATION
     Dosage: 200 MG, UNK
  9. PREDNISONE TAB [Concomitant]
     Indication: PRURITUS
     Dosage: 5 MG, UNK
  10. ALBUTEROL [Concomitant]
     Indication: PULMONARY FUNCTION TEST ABNORMAL
  11. ATIVAN [Concomitant]
     Indication: SLEEP DISORDER
     Dosage: 2 MG, UNK

REACTIONS (2)
  - ASTHENIA [None]
  - CHEST DISCOMFORT [None]
